FAERS Safety Report 8170601-6 (Version None)
Quarter: 2012Q1

REPORT INFORMATION
  Report Type: 
  Country: None (occurrence: None)
  Receive Date: 20120228
  Receipt Date: 20120216
  Transmission Date: 20120608
  Serious: Yes (Death, Life-Threatening, Hospitalization)
  Sender: FDA-Public Use
  Company Number: JP-AMGEN-JPNCT2011057481

PATIENT
  Age: 73 Year
  Sex: Male
  Weight: 49 kg

DRUGS (28)
  1. IRINOTECAN HCL [Suspect]
     Indication: COLORECTAL CANCER
     Dosage: 240 MG, Q2WK
     Route: 041
     Dates: start: 20110916, end: 20110916
  2. FLUOROURACIL [Concomitant]
     Dosage: 660 MG, Q2WK
     Route: 040
     Dates: start: 20111004, end: 20111018
  3. ASPIRIN [Concomitant]
     Dosage: 100 MG, QD
     Route: 048
     Dates: end: 20111016
  4. CARVEDILOL [Concomitant]
     Dosage: 2.5 MG, UNK
     Route: 048
     Dates: end: 20111016
  5. SIGMART [Concomitant]
     Dosage: 15 MG, UNK
     Route: 048
     Dates: end: 20111016
  6. LYRICA [Concomitant]
     Dosage: 150 MG, UNK
     Route: 048
     Dates: end: 20111016
  7. TAMSULOSIN HCL [Concomitant]
     Dosage: UNK
     Route: 048
     Dates: start: 20111018, end: 20111024
  8. YODEL [Concomitant]
     Dosage: UNK
     Route: 048
     Dates: end: 20111016
  9. HIRUDOID [Concomitant]
     Indication: PROPHYLAXIS
     Dosage: UNK
     Route: 062
     Dates: start: 20111004
  10. GASMOTIN [Concomitant]
     Dosage: UNK
     Route: 048
     Dates: start: 20110912, end: 20111017
  11. FLUOROURACIL [Concomitant]
     Dosage: 3960 MG, Q2WK
     Route: 041
     Dates: start: 20110916, end: 20110918
  12. MAGNESIUM OXIDE [Concomitant]
     Dosage: UNK
     Route: 048
     Dates: start: 20110929, end: 20111017
  13. ALOXI [Concomitant]
     Indication: PROPHYLAXIS
     Dosage: 0.75 MG, Q2WK
     Route: 042
     Dates: start: 20110916, end: 20111018
  14. DECADRON [Concomitant]
     Indication: PROPHYLAXIS
     Dosage: 0.6 MG, Q2WK
     Route: 065
     Dates: start: 20110916, end: 20111018
  15. FLUOROURACIL [Concomitant]
     Indication: COLORECTAL CANCER
     Dosage: 660 MG, Q2WK
     Route: 040
     Dates: start: 20110916, end: 20110916
  16. MAGNESIUM SULFATE [Concomitant]
     Dosage: UNK
     Route: 048
     Dates: end: 20111016
  17. GASCON [Concomitant]
     Dosage: UNK
     Route: 048
     Dates: end: 20111016
  18. LORAZEPAM [Concomitant]
     Dosage: 0.5 MG, UNK
     Route: 048
     Dates: start: 20111011, end: 20111017
  19. PANITUMUMAB [Suspect]
     Indication: COLORECTAL CANCER
     Dosage: 336 MG, Q2WK
     Route: 041
     Dates: start: 20111004, end: 20111018
  20. IRINOTECAN HCL [Suspect]
     Dosage: 180 MG, Q2WK
     Route: 041
     Dates: start: 20101004, end: 20101018
  21. LEVOLEUCOVORIN CALCIUM [Concomitant]
     Indication: COLORECTAL CANCER
     Dosage: 325 MG, Q2WK
     Route: 041
     Dates: start: 20110916, end: 20110916
  22. LEVOLEUCOVORIN CALCIUM [Concomitant]
     Dosage: 325 MG, Q2WK
     Route: 041
     Dates: start: 20111004, end: 20111018
  23. ZOMETA [Concomitant]
     Indication: METASTASES TO BONE
     Dosage: 4 MG, Q2WK
     Route: 042
     Dates: start: 20110929, end: 20111020
  24. PYDOXAL [Concomitant]
     Route: 048
     Dates: start: 20111011, end: 20111017
  25. FLUOROURACIL [Concomitant]
     Dosage: 3960 MG, Q2WK
     Route: 041
     Dates: start: 20111004, end: 20111018
  26. BASEN [Concomitant]
     Dosage: UNK
     Route: 048
     Dates: end: 20111016
  27. WARFARIN SODIUM [Concomitant]
     Dosage: 1 MG, UNK
     Route: 048
     Dates: end: 20111016
  28. FENTANYL CITRATE [Concomitant]
     Indication: BACK PAIN
     Dosage: UNK
     Route: 062
     Dates: start: 20110929, end: 20111024

REACTIONS (6)
  - NAUSEA [None]
  - APHTHOUS STOMATITIS [None]
  - TOXIC EPIDERMAL NECROLYSIS [None]
  - NEUTROPHIL COUNT DECREASED [None]
  - INTERSTITIAL LUNG DISEASE [None]
  - CHEILITIS [None]
